FAERS Safety Report 8914526 (Version 3)
Quarter: 2013Q1

REPORT INFORMATION
  Report Type: Report from Study
  Country: US (occurrence: US)
  Receive Date: 20121116
  Receipt Date: 20130124
  Transmission Date: 20140127
  Serious: Yes (Other)
  Sender: FDA-Public Use
  Company Number: US-ABBOTT-12P-163-1006405-00

PATIENT
  Age: 77 Year
  Sex: Female
  Weight: 79.45 kg

DRUGS (8)
  1. HUMIRA [Suspect]
     Indication: PSORIASIS
     Route: 058
     Dates: start: 20070906
  2. HUMIRA [Suspect]
     Route: 058
     Dates: start: 20091030
  3. DOVONEX [Concomitant]
     Indication: PSORIASIS
     Dates: start: 20060308
  4. DOVONEX [Concomitant]
     Indication: PSORIASIS
  5. ULTRAVATE [Concomitant]
     Indication: PSORIASIS
     Dates: start: 20080612
  6. ULTRAVATE [Concomitant]
     Indication: PSORIASIS
  7. OLUX [Concomitant]
     Indication: PSORIASIS
     Dosage: FOAM
     Dates: start: 20060308
  8. OLUX [Concomitant]
     Indication: PSORIASIS

REACTIONS (1)
  - Squamous cell carcinoma of skin [Recovered/Resolved]
